FAERS Safety Report 6813531-1 (Version None)
Quarter: 2010Q3

REPORT INFORMATION
  Report Type: 
  Country: None (occurrence: None)
  Receive Date: 20100701
  Receipt Date: 20100621
  Transmission Date: 20110219
  Serious: Yes (Other)
  Sender: FDA-Public Use
  Company Number: CA-TEVA-238574USA

PATIENT
  Age: 21 Year
  Sex: Male

DRUGS (2)
  1. CLOZAPINE [Suspect]
  2. ARIPIPRAZOLE [Interacting]

REACTIONS (3)
  - DRUG INTERACTION [None]
  - MENTAL STATUS CHANGES [None]
  - PSYCHOTIC DISORDER [None]
